FAERS Safety Report 9262844 (Version 2)
Quarter: 2013Q2

REPORT INFORMATION
  Report Type: Report from Study
  Country: VE (occurrence: VE)
  Receive Date: 20130430
  Receipt Date: 20130606
  Transmission Date: 20140414
  Serious: Yes (Death, Other)
  Sender: FDA-Public Use
  Company Number: PHHY2013VE042063

PATIENT
  Age: 61 Year
  Sex: Female

DRUGS (2)
  1. AFINITOR [Suspect]
     Indication: BREAST CANCER
     Dosage: 10 MG, DAILY
     Route: 048
     Dates: start: 201210
  2. ENALAPRIL [Concomitant]
     Indication: HYPERTENSION
     Dosage: 10 MG, DAILY
     Dates: start: 20121204

REACTIONS (3)
  - Myocardial infarction [Fatal]
  - Dyspnoea [Not Recovered/Not Resolved]
  - Vomiting [Not Recovered/Not Resolved]
